FAERS Safety Report 5699319-6 (Version None)
Quarter: 2008Q2

REPORT INFORMATION
  Report Type: 
  Country: None (occurrence: None)
  Receive Date: 20080404
  Receipt Date: 20080326
  Transmission Date: 20081010
  Serious: Yes (Other)
  Sender: FDA-Public Use
  Company Number: 2008US000913

PATIENT
  Age: 38 Year
  Sex: Male

DRUGS (2)
  1. PROGRAF [Suspect]
     Indication: BONE MARROW TRANSPLANT
  2. SIROLIMUS (SIROLIMUS) [Suspect]
     Indication: BONE MARROW TRANSPLANT

REACTIONS (3)
  - ANGIOEDEMA [None]
  - DRUG LEVEL INCREASED [None]
  - INHIBITORY DRUG INTERACTION [None]
